FAERS Safety Report 5078940-2 (Version None)
Quarter: 2006Q3

REPORT INFORMATION
  Report Type: 
  Country: None (occurrence: None)
  Receive Date: 20060809
  Receipt Date: 20060809
  Transmission Date: 20061208
  Serious: Yes (Other)
  Sender: FDA-Public Use
  Company Number: None

PATIENT
  Sex: Female
  Weight: 97.5234 kg

DRUGS (1)
  1. METFORMIN 500 MG [Suspect]
     Indication: DIABETES MELLITUS
     Dosage: 1000 MG TWICE DAILY PO
     Route: 048
     Dates: start: 20041101, end: 20060808

REACTIONS (4)
  - BACK PAIN [None]
  - DEPRESSION [None]
  - HYPERHIDROSIS [None]
  - SIMILAR REACTION ON PREVIOUS EXPOSURE TO DRUG [None]
